FAERS Safety Report 4762590-9 (Version None)
Quarter: 2005Q3

REPORT INFORMATION
  Report Type: 
  Country: None (occurrence: None)
  Receive Date: 20050907
  Receipt Date: 20050810
  Transmission Date: 20060218
  Serious: Yes (Other)
  Sender: FDA-Public Use
  Company Number: US-GLAXOSMITHKLINE-A0569738A

PATIENT
  Sex: Male

DRUGS (22)
  1. AVODART [Suspect]
     Indication: DRUG USE FOR UNKNOWN INDICATION
  2. CELEBREX [Concomitant]
  3. GLUCOPHAGE [Concomitant]
     Dosage: 2TAB PER DAY
  4. LOTREL [Concomitant]
     Dosage: 1CAP AT NIGHT
  5. SALINE [Concomitant]
     Route: 045
  6. SENOKOT [Concomitant]
     Dosage: 6TAB PER DAY
  7. MIRALAX [Concomitant]
  8. CPAP [Concomitant]
  9. PAIN MEDICATION [Concomitant]
  10. MORPHINE/BUPIVACAINE [Concomitant]
     Dosage: 12.5MG PER DAY
  11. MORPHINE [Concomitant]
  12. HYDROMORPHONE [Concomitant]
  13. TESTOSTERONE [Concomitant]
     Dosage: 250MG EVERY TWO WEEKS
  14. SYSTANE [Concomitant]
     Dosage: 2DROP FOUR TIMES PER DAY
  15. RESTASIS [Concomitant]
     Dosage: 1DROP TWICE PER DAY
     Route: 047
  16. TRAMADOL HCL [Concomitant]
  17. TRIAMCINOLONE [Concomitant]
  18. SKELAXIN [Concomitant]
  19. TYLENOL [Concomitant]
  20. UROXATRAL [Concomitant]
     Dosage: 1TAB PER DAY
  21. PROMETH [Concomitant]
  22. ALBUTEROL [Concomitant]

REACTIONS (2)
  - GROIN PAIN [None]
  - HAEMORRHAGE [None]
